FAERS Safety Report 5547623-4 (Version None)
Quarter: 2007Q4

REPORT INFORMATION
  Report Type: 
  Country: None (occurrence: None)
  Receive Date: 20071211
  Receipt Date: 20071206
  Transmission Date: 20080405
  Serious: Yes (Other)
  Sender: FDA-Public Use
  Company Number: CA-BOEHRINGER INGELHEIM PHARMACEUTICALS, INC.-2007-DE-07235GD

PATIENT
  Sex: Male

DRUGS (8)
  1. VIRAMUNE [Suspect]
     Indication: HIV INFECTION
     Dates: start: 19970801
  2. ZERIT [Suspect]
     Indication: HIV INFECTION
     Dates: start: 19970801
  3. LAMIVUDINE [Suspect]
     Indication: HIV INFECTION
     Dates: start: 19970801
  4. SAQUINAVIR [Suspect]
     Indication: HIV INFECTION
     Dates: start: 19970801
  5. SAQUINAVIR [Suspect]
  6. NORVIR [Suspect]
     Indication: HIV INFECTION
     Dates: start: 19970801
  7. NORVIR [Suspect]
  8. ANTIBIOTICS [Suspect]
     Indication: LOWER RESPIRATORY TRACT INFECTION

REACTIONS (11)
  - BLOOD TRIGLYCERIDES INCREASED [None]
  - CLOSTRIDIUM DIFFICILE COLITIS [None]
  - DIABETES MELLITUS [None]
  - DIARRHOEA [None]
  - DRUG RESISTANCE [None]
  - KAPOSI'S SARCOMA [None]
  - LIPODYSTROPHY ACQUIRED [None]
  - LOWER RESPIRATORY TRACT INFECTION [None]
  - NAUSEA [None]
  - PNEUMONIA BACTERIAL [None]
  - VIRAL MUTATION IDENTIFIED [None]
